FAERS Safety Report 7051675-2 (Version None)
Quarter: 2010Q4

REPORT INFORMATION
  Report Type: 
  Country: None (occurrence: None)
  Receive Date: 20101018
  Receipt Date: 20101018
  Transmission Date: 20110411
  Serious: No
  Sender: FDA-Public Use
  Company Number: None

PATIENT
  Age: 64 Year
  Sex: Male
  Weight: 95.2554 kg

DRUGS (2)
  1. COZAAR [Suspect]
     Indication: HYPERTENSION
     Dosage: 1PER DAY
     Dates: start: 20040101, end: 20100630
  2. LOSARTAN 50MG SANDOZ [Suspect]
     Dates: start: 20100701, end: 20101015

REACTIONS (3)
  - FEELING ABNORMAL [None]
  - PRODUCT SUBSTITUTION ISSUE [None]
  - VISION BLURRED [None]
